FAERS Safety Report 18080931 (Version 2)
Quarter: 2020Q3

REPORT INFORMATION
  Report Type: Spontaneous
  Country: JP (occurrence: JP)
  Receive Date: 20200728
  Receipt Date: 20200817
  Transmission Date: 20201103
  Serious: Yes (Death)
  Sender: FDA-Public Use
  Company Number: JP-ALLERGAN-2027640US

PATIENT
  Sex: Female

DRUGS (3)
  1. ESCITALOPRAM OXALATE ? BP [Suspect]
     Active Substance: ESCITALOPRAM OXALATE
     Dosage: 10 MG
     Route: 048
  2. ESCITALOPRAM OXALATE ? BP [Suspect]
     Active Substance: ESCITALOPRAM OXALATE
     Indication: ANXIETY
     Dosage: 5 MG
     Route: 048
  3. ROZEREM [Concomitant]
     Active Substance: RAMELTEON
     Route: 048

REACTIONS (2)
  - Cardiac failure [Fatal]
  - Underdose [Unknown]
